FAERS Safety Report 4899175-X (Version None)
Quarter: 2006Q1

REPORT INFORMATION
  Report Type: 
  Country: None (occurrence: None)
  Receive Date: 20060131
  Receipt Date: 20060117
  Transmission Date: 20060701
  Serious: Yes (Other)
  Sender: FDA-Public Use
  Company Number: BMRN-2006-004

PATIENT
  Sex: Male

DRUGS (1)
  1. ORAPRED(PREDNISOLONE SODIUM PHOSPHATE) SOLUTION (EXCEPT SYRUP), 20.2MG [Suspect]
     Dosage: ORAL
     Route: 048

REACTIONS (1)
  - EMBOLISM VENOUS [None]
